FAERS Safety Report 11244531 (Version 3)
Quarter: 2015Q3

REPORT INFORMATION
  Report Type: Spontaneous
  Country: DE (occurrence: DE)
  Receive Date: 20150707
  Receipt Date: 20150810
  Transmission Date: 20151125
  Serious: Yes (Other)
  Sender: FDA-Public Use
  Company Number: DE-ALEXION PHARMACEUTICALS INC-A201502453

PATIENT

DRUGS (5)
  1. SOLIRIS [Suspect]
     Active Substance: ECULIZUMAB
     Indication: HAEMOLYTIC URAEMIC SYNDROME
     Dosage: 1200 MG, UNK
     Route: 042
     Dates: start: 201401, end: 201402
  2. MYFORTIC [Suspect]
     Active Substance: MYCOPHENOLATE SODIUM
     Indication: TRANSPLANT
     Dosage: 360 MG, BID
     Route: 065
     Dates: start: 20130202
  3. CELLCEPT [Concomitant]
     Active Substance: MYCOPHENOLATE MOFETIL\MYCOPHENOLATE MOFETIL HYDROCHLORIDE
     Indication: PRODUCT USED FOR UNKNOWN INDICATION
     Route: 065
  4. PROGRAF [Concomitant]
     Active Substance: TACROLIMUS\TACROLIMUS ANHYDROUS
     Indication: TRANSPLANT
     Dosage: 5.5 G, (3-0-2.5 G)
     Route: 065
     Dates: start: 20130202
  5. SOLIRIS [Suspect]
     Active Substance: ECULIZUMAB
     Dosage: 900 MG, Q2W
     Route: 042
     Dates: start: 201403

REACTIONS (8)
  - Red blood cell count decreased [Unknown]
  - Mean cell haemoglobin decreased [Unknown]
  - Leukopenia [Not Recovered/Not Resolved]
  - Neutrophil percentage decreased [Recovering/Resolving]
  - Blood lactate dehydrogenase increased [Unknown]
  - Haematocrit decreased [Unknown]
  - Inappropriate schedule of drug administration [Not Recovered/Not Resolved]
  - Haemoglobin decreased [Unknown]

NARRATIVE: CASE EVENT DATE: 201401
